FAERS Safety Report 9730386 (Version 1)
Quarter: 2013Q4

REPORT INFORMATION
  Report Type: Spontaneous
  Country: BR (occurrence: BR)
  Receive Date: 20131202
  Receipt Date: 20131202
  Transmission Date: 20140711
  Serious: Yes (Other)
  Sender: FDA-Public Use
  Company Number: BR-SHIRE-ALL1-2013-08269

PATIENT
  Age: 9 Year
  Sex: Male

DRUGS (6)
  1. ELAPRASE [Suspect]
     Indication: MUCOPOLYSACCHARIDOSIS II
     Dosage: 12 MG, 1X/WEEK
     Route: 041
     Dates: start: 20111214, end: 2013
  2. ELAPRASE [Suspect]
     Dosage: 1 MG, 1X/WEEK
     Route: 041
     Dates: start: 2013, end: 2013
  3. ELAPRASE [Suspect]
     Dosage: 2 MG, 1X/WEEK (DOSE INCREASED BY ONE MG EACH MONTH UNTIL REACHING 4MG)
     Route: 041
     Dates: start: 2013, end: 2013
  4. ELAPRASE [Suspect]
     Dosage: 3 MG, 1X/WEEK (DOSE INCREASED BY ONE MG EACH MONTH UNTIL REACHING 4MG)
     Dates: start: 2013, end: 2013
  5. ELAPRASE [Suspect]
     Dosage: 4 MG, 1X/WEEK (DOSE INCREASED BY ONE MG EACH MONTH UNTIL REACHING 4MG)
     Route: 041
  6. DIPHENHYDRAMINE [Concomitant]
     Indication: PREMEDICATION
     Dosage: UNK, UNKNOWN
     Route: 065
     Dates: start: 20111214

REACTIONS (8)
  - Respiratory distress [Unknown]
  - Hypersensitivity [Unknown]
  - Dyspnoea [Unknown]
  - Generalised oedema [Unknown]
  - Infusion related reaction [Not Recovered/Not Resolved]
  - Rash [Unknown]
  - Urticaria [Unknown]
  - Skin plaque [Unknown]
